FAERS Safety Report 5167098-7 (Version None)
Quarter: 2006Q4

REPORT INFORMATION
  Report Type: 
  Country: None (occurrence: None)
  Receive Date: 20061207
  Receipt Date: 20061205
  Transmission Date: 20070319
  Serious: Yes (Other)
  Sender: FDA-Public Use
  Company Number: US-GLAXOSMITHKLINE-A0630679A

PATIENT
  Sex: Female

DRUGS (2)
  1. AUGMENTIN '125' [Suspect]
     Indication: ANIMAL BITE
     Route: 048
     Dates: start: 19930101, end: 19930101
  2. PAXIL [Suspect]
     Indication: DRUG USE FOR UNKNOWN INDICATION
     Dosage: 2.5MG SINGLE DOSE
     Route: 048

REACTIONS (4)
  - COLITIS ULCERATIVE [None]
  - DIARRHOEA [None]
  - DRUG HYPERSENSITIVITY [None]
  - PALPITATIONS [None]
